FAERS Safety Report 8624052-8 (Version None)
Quarter: 2012Q3

REPORT INFORMATION
  Report Type: 
  Country: None (occurrence: None)
  Receive Date: 20120824
  Receipt Date: 20120824
  Transmission Date: 20120928
  Serious: Yes (Other)
  Sender: FDA-Public Use
  Company Number: None

PATIENT
  Age: 61 Year
  Sex: Male

DRUGS (1)
  1. COPAXONE [Suspect]
     Indication: MULTIPLE SCLEROSIS
     Dosage: 20MG QD SQ
     Route: 058
     Dates: start: 20080627, end: 20120420

REACTIONS (6)
  - DYSPNOEA [None]
  - VISION BLURRED [None]
  - HYPERHIDROSIS [None]
  - THROAT TIGHTNESS [None]
  - FEELING ABNORMAL [None]
  - PRURITUS [None]
